FAERS Safety Report 16996063 (Version 3)
Quarter: 2020Q1

REPORT INFORMATION
  Report Type: Spontaneous
  Country: US (occurrence: US)
  Receive Date: 20191105
  Receipt Date: 20200123
  Transmission Date: 20200409
  Serious: No
  Sender: FDA-Public Use
  Company Number: US-PFIZER INC-2019474928

PATIENT
  Age: 60 Year
  Sex: Female
  Weight: 91 kg

DRUGS (4)
  1. TRAMADOL. [Concomitant]
     Active Substance: TRAMADOL
     Indication: HERPES ZOSTER OTICUS
     Dosage: 50 MG, AS NEEDED (EVERY 6 HOURS AS NEEDED)
     Route: 048
     Dates: start: 201603
  2. LYRICA [Suspect]
     Active Substance: PREGABALIN
     Indication: HERPES ZOSTER OTICUS
     Dosage: 50 MG, 3X/DAY
     Dates: start: 201603
  3. LYRICA [Suspect]
     Active Substance: PREGABALIN
     Dosage: 50 MG, 3X/DAY
     Route: 048
  4. LYRICA [Suspect]
     Active Substance: PREGABALIN
     Indication: NERVE INJURY
     Dosage: 100 MG, 3X/DAY

REACTIONS (4)
  - Lethargy [Recovered/Resolved]
  - Expired product administered [Unknown]
  - Drug ineffective [Not Recovered/Not Resolved]
  - Amnesia [Recovered/Resolved]

NARRATIVE: CASE EVENT DATE: 2016
